FAERS Safety Report 9432440 (Version 4)
Quarter: 2013Q4

REPORT INFORMATION
  Report Type: Spontaneous
  Country: FR (occurrence: FR)
  Receive Date: 20130731
  Receipt Date: 20131004
  Transmission Date: 20140711
  Serious: Yes (Life-Threatening, Hospitalization)
  Sender: FDA-Public Use
  Company Number: FR-PFIZER INC-2013218221

PATIENT
  Age: 74 Year
  Sex: Male

DRUGS (21)
  1. LEDERFOLINE [Suspect]
     Indication: PROPHYLAXIS
     Dosage: 1 DF, WEEKLY
     Route: 048
     Dates: start: 20130426, end: 20130621
  2. SOLU-MEDROL [Suspect]
     Dosage: 80 MG, 1X/DAY
     Dates: start: 20130524, end: 20130524
  3. BACTRIM FORTE [Suspect]
     Indication: ANTIBIOTIC PROPHYLAXIS
     Dosage: 1 DF, UNK (1 TABLETS 3 TIMES PER WEEKS)
     Route: 048
     Dates: start: 20130426, end: 20130610
  4. ZELITREX [Suspect]
     Indication: PROPHYLAXIS
     Dosage: 500 MG, 2X/DAY (1 TABLETS TWICE DAILY)
     Route: 048
     Dates: start: 20130426
  5. MABTHERA [Suspect]
     Indication: CHRONIC LYMPHOCYTIC LEUKAEMIA
     Dosage: 1ST COURSE, CYCLIC
     Dates: start: 20130425
  6. MABTHERA [Suspect]
     Dosage: 2ND COURSE, CYCLIC
     Dates: start: 20130524
  7. ENDOXAN [Suspect]
     Indication: CHRONIC LYMPHOCYTIC LEUKAEMIA
     Dosage: 1ST COURSE 450 MG, CYCLIC (450 MG PER TREATMENT CYCLE)
     Route: 048
     Dates: start: 20130425
  8. ENDOXAN [Suspect]
     Dosage: 2ND COURSE 450 MG, CYCLIC (450 MG PER TREATMENT CYCLE)
     Route: 048
     Dates: start: 20130524, end: 20130526
  9. FLUDARABINE PHOSPHATE [Suspect]
     Indication: CHRONIC LYMPHOCYTIC LEUKAEMIA
     Dosage: 1ST COURSE 70 MG, 1X/DAY
     Route: 048
     Dates: start: 20130425
  10. FLUDARABINE PHOSPHATE [Suspect]
     Dosage: 2ND COURSE 70 MG, 1X/DAY
     Dates: start: 20130524, end: 20130526
  11. ZYLORIC [Suspect]
     Indication: HYPOURICAEMIA
     Dosage: 300 MG, 2X/DAY (1 TABLET TWICE DAILY)
     Route: 048
     Dates: start: 20130426, end: 20130524
  12. POLARAMINE [Suspect]
     Dosage: 5 MG, UNK
     Route: 042
     Dates: start: 20130524, end: 20130524
  13. POLARAMINE [Suspect]
     Dosage: 2 MG, 3X/DAY (2 MG: 1 TABLET THRICE A DAY)
     Route: 042
     Dates: start: 20130618
  14. PERFALGAN [Suspect]
     Dosage: 500 MG, UNK
     Dates: start: 20130524, end: 20130524
  15. GRANULOCYTE COLONY-STIMULATING FACTOR NOS [Suspect]
     Dosage: UNK, FROM DAY 6 TO DAY 12
     Dates: start: 201305, end: 201306
  16. SILODYX [Concomitant]
     Dosage: 8 MG, 1X/DAY (1 DF IN THE MORNING)
     Route: 048
  17. ZANIDIP [Concomitant]
     Dosage: 1 DF, 1X/DAY (IN THE MORNING)
     Route: 048
  18. KARDEGIC [Concomitant]
     Dosage: 75 MG, 1X/DAY (1 DF IN THE MORNING)
     Route: 048
  19. CRESTOR [Concomitant]
     Dosage: 5 MG, 1X/DAY (1 DF IN THE MORNING)
     Route: 048
  20. DUOTRAV [Concomitant]
     Dosage: 1 GTT, 1X/DAY (ONE DROP IN THE RIGHT EYE IN THE EVENING)
     Route: 047
  21. TRUSOPT [Concomitant]
     Dosage: 1 GTT, 1X/DAY (ONE DROP IN THE RIGHT EYE IN THE EVENING)
     Route: 047

REACTIONS (1)
  - Drug reaction with eosinophilia and systemic symptoms [Recovered/Resolved]
